FAERS Safety Report 5335320-X (Version None)
Quarter: 2007Q2

REPORT INFORMATION
  Report Type: 
  Country: None (occurrence: None)
  Receive Date: 20070327
  Receipt Date: 20060915
  Transmission Date: 20071010
  Serious: Yes (Other)
  Sender: FDA-Public Use
  Company Number: HQWYE770415SEP06

PATIENT
  Age: 62 Year
  Sex: Female
  Weight: 93.07 kg

DRUGS (9)
  1. PROTONIX [Suspect]
     Indication: GASTROOESOPHAGEAL REFLUX DISEASE
     Dosage: 40 MG 1X PER 1 DAY ORAL
     Route: 048
     Dates: start: 20060824, end: 20060825
  2. REGLAN [Suspect]
     Indication: DRUG USE FOR UNKNOWN INDICATION
     Dosage: 10 MG ONCE ORAL
     Route: 048
     Dates: start: 20060824, end: 20060824
  3. LORCET-HD [Concomitant]
  4. SYNTHROID [Concomitant]
  5. VYTORIN [Concomitant]
  6. ZOLOFT [Concomitant]
  7. DIOVAN [Concomitant]
  8. HYDROCHLOROTHIAZIDE [Concomitant]
  9. NEURONTIN [Concomitant]

REACTIONS (4)
  - ANGIOEDEMA [None]
  - FACE OEDEMA [None]
  - HEADACHE [None]
  - LARYNGITIS [None]
